FAERS Safety Report 8773309 (Version 1)
Quarter: 2012Q4

REPORT INFORMATION
  Report Type: 
  Country: US (occurrence: US)
  Receive Date: 20120907
  Receipt Date: 20120907
  Transmission Date: 20130627
  Serious: Yes (Other)
  Sender: FDA-Public Use
  Company Number: US-ROCHE-1105876

PATIENT
  Sex: Female

DRUGS (3)
  1. ADO-TRASTUZUMAB EMTANSINE [Suspect]
     Indication: PRODUCT USED FOR UNKNOWN INDICATION
     Route: 065
     Dates: start: 201105
  2. HERCEPTIN [Suspect]
     Indication: PRODUCT USED FOR UNKNOWN INDICATION
     Route: 065
     Dates: start: 200912
  3. TAXOTERE [Concomitant]
     Route: 065
     Dates: start: 200912

REACTIONS (6)
  - Pulmonary mass [Unknown]
  - Metastasis [Unknown]
  - Chest discomfort [Unknown]
  - Dyspnoea [Unknown]
  - Platelet count decreased [Unknown]
  - Hepatic enzyme increased [Unknown]
